FAERS Safety Report 15590582 (Version 1)
Quarter: 2018Q4

REPORT INFORMATION
  Report Type: Spontaneous
  Country: US (occurrence: US)
  Receive Date: 20181106
  Receipt Date: 20181106
  Transmission Date: 20190205
  Serious: Yes (Other)
  Sender: FDA-Public Use
  Company Number: US-ABBVIE-18K-163-2538849-00

PATIENT
  Sex: Female

DRUGS (1)
  1. LUPRON DEPOT [Suspect]
     Active Substance: LEUPROLIDE ACETATE
     Indication: ENDOMETRIOSIS
     Dosage: PATIENT RECEIVED TWO SHOTS OF LUPRON
     Route: 050
     Dates: start: 2004

REACTIONS (7)
  - Polyarthritis [Unknown]
  - Rash [Unknown]
  - Feeling abnormal [Unknown]
  - Osteopenia [Unknown]
  - Pain [Unknown]
  - Osteoporosis [Unknown]
  - Surgery [Unknown]
